FAERS Safety Report 10452834 (Version 1)
Quarter: 2014Q3

REPORT INFORMATION
  Report Type: Spontaneous
  Country: US (occurrence: None)
  Receive Date: 20140912
  Receipt Date: 20140912
  Transmission Date: 20150326
  Serious: Yes (Hospitalization)
  Sender: FDA-Public Use
  Company Number: None

PATIENT
  Age: 84 Year
  Sex: Male
  Weight: 103.8 kg

DRUGS (2)
  1. CIPROFLOXACIN. [Suspect]
     Active Substance: CIPROFLOXACIN
     Indication: POSTOPERATIVE CARE
     Route: 047
     Dates: start: 20140618, end: 20140630
  2. CIPROFLOXACIN. [Suspect]
     Active Substance: CIPROFLOXACIN
     Indication: EYE OPERATION
     Route: 047
     Dates: start: 20140618, end: 20140630

REACTIONS (4)
  - Pruritus [None]
  - Rash macular [None]
  - Urticaria [None]
  - Respiratory depression [None]

NARRATIVE: CASE EVENT DATE: 20140627
